FAERS Safety Report 17352589 (Version 2)
Quarter: 2020Q1

REPORT INFORMATION
  Report Type: Spontaneous
  Country: TR (occurrence: TR)
  Receive Date: 20200131
  Receipt Date: 20200206
  Transmission Date: 20200409
  Serious: Yes (Other)
  Sender: FDA-Public Use
  Company Number: TR-ABBVIE-20P-161-3255467-00

PATIENT
  Age: 39 Year
  Sex: Male

DRUGS (2)
  1. SUDAFED [Concomitant]
     Active Substance: PSEUDOEPHEDRINE HYDROCHLORIDE
     Indication: PRODUCT USED FOR UNKNOWN INDICATION
     Dates: start: 20200123, end: 202001
  2. KLACID [Suspect]
     Active Substance: CLARITHROMYCIN
     Indication: SINUSITIS
     Dosage: ONE TABLET IN THE MORNING AND EVENING, DD 2 TABLETS
     Route: 048
     Dates: start: 20200123, end: 20200125

REACTIONS (10)
  - Abdominal discomfort [Recovered/Resolved]
  - Illusion [Recovered/Resolved]
  - Insomnia [Recovered/Resolved]
  - Hallucination [Recovered/Resolved]
  - Depression [Recovered/Resolved]
  - Anxiety [Recovered/Resolved]
  - Oedema [Recovered/Resolved]
  - Abdominal distension [Recovered/Resolved]
  - Discomfort [Recovered/Resolved]
  - Parosmia [Recovered/Resolved]

NARRATIVE: CASE EVENT DATE: 202001
